FAERS Safety Report 13119994 (Version 3)
Quarter: 2017Q3

REPORT INFORMATION
  Report Type: Report from Study
  Country: JP (occurrence: JP)
  Receive Date: 20170117
  Receipt Date: 20170704
  Transmission Date: 20171127
  Serious: Yes (Death, Hospitalization)
  Sender: FDA-Public Use
  Company Number: JP-ASTRAZENECA-2016SE67031

PATIENT
  Age: 46 Year
  Sex: Female
  Weight: 47 kg

DRUGS (7)
  1. TAKECAB [Concomitant]
     Active Substance: VONOPRAZAN FUMURATE
     Route: 048
     Dates: start: 20161004
  2. TAGRISSO [Suspect]
     Active Substance: OSIMERTINIB
     Indication: NON-SMALL CELL LUNG CANCER
     Route: 048
     Dates: start: 20160526, end: 20160922
  3. TAGRISSO [Suspect]
     Active Substance: OSIMERTINIB
     Indication: NON-SMALL CELL LUNG CANCER
     Route: 048
     Dates: start: 20160930, end: 20161105
  4. TRAMADOL HYDROCHLORIDE. [Concomitant]
     Active Substance: TRAMADOL HYDROCHLORIDE
     Route: 048
     Dates: start: 20161101
  5. LYRICA [Concomitant]
     Active Substance: PREGABALIN
     Route: 048
     Dates: start: 20160920
  6. TRAMAL [Concomitant]
     Active Substance: TRAMADOL
     Route: 048
     Dates: start: 20160920
  7. FENTANYL CITRATE. [Concomitant]
     Active Substance: FENTANYL CITRATE
     Route: 062
     Dates: start: 20161013

REACTIONS (4)
  - Paronychia [Not Recovered/Not Resolved]
  - Interstitial lung disease [Not Recovered/Not Resolved]
  - White blood cell count decreased [Not Recovered/Not Resolved]
  - Rash [Recovering/Resolving]

NARRATIVE: CASE EVENT DATE: 20160530
